FAERS Safety Report 7564242-9 (Version None)
Quarter: 2011Q2

REPORT INFORMATION
  Report Type: 
  Country: None (occurrence: None)
  Receive Date: 20110622
  Receipt Date: 20110608
  Transmission Date: 20111010
  Serious: Yes (Other)
  Sender: FDA-Public Use
  Company Number: PHHY2011BR50767

PATIENT
  Sex: Female

DRUGS (1)
  1. EXELON [Suspect]
     Dosage: UNK
     Route: 062

REACTIONS (1)
  - BREAST CANCER [None]
